FAERS Safety Report 16323895 (Version 2)
Quarter: 2019Q2

REPORT INFORMATION
  Report Type: Report from Study
  Country: US (occurrence: US)
  Receive Date: 20190517
  Receipt Date: 20190605
  Transmission Date: 20190711
  Serious: Yes (Hospitalization)
  Sender: FDA-Public Use
  Company Number: US-ROCHE-2317455

PATIENT
  Sex: Male

DRUGS (14)
  1. MODAFINIL. [Concomitant]
     Active Substance: MODAFINIL
  2. AMPYRA [Concomitant]
     Active Substance: DALFAMPRIDINE
  3. GABAPENTIN. [Concomitant]
     Active Substance: GABAPENTIN
  4. METFORMIN [Concomitant]
     Active Substance: METFORMIN HYDROCHLORIDE
     Route: 065
  5. KENALOG [Concomitant]
     Active Substance: TRIAMCINOLONE ACETONIDE
  6. BACLOFEN. [Concomitant]
     Active Substance: BACLOFEN
  7. DICLOFENAC [Concomitant]
     Active Substance: DICLOFENAC
  8. OCREVUS [Suspect]
     Active Substance: OCRELIZUMAB
     Indication: RELAPSING MULTIPLE SCLEROSIS
     Route: 065
     Dates: start: 20171004
  9. SOLIFENACIN [Concomitant]
     Active Substance: SOLIFENACIN
  10. TRAZODONE [Concomitant]
     Active Substance: TRAZODONE HYDROCHLORIDE
  11. ATORVASTATIN [Concomitant]
     Active Substance: ATORVASTATIN
  12. CHOLECALCIFEROL [Concomitant]
     Active Substance: CHOLECALCIFEROL
  13. LISINOPRIL. [Concomitant]
     Active Substance: LISINOPRIL
  14. VENLAFAXINE [Concomitant]
     Active Substance: VENLAFAXINE HYDROCHLORIDE

REACTIONS (2)
  - Urinary tract infection [Not Recovered/Not Resolved]
  - Pneumonia [Not Recovered/Not Resolved]
